FAERS Safety Report 6640268-4 (Version None)
Quarter: 2010Q1

REPORT INFORMATION
  Report Type: 
  Country: None (occurrence: None)
  Receive Date: 20100318
  Receipt Date: 20100309
  Transmission Date: 20100710
  Serious: Yes (Other)
  Sender: FDA-Public Use
  Company Number: HR-ASTRAZENECA-2010SE10237

PATIENT
  Age: 22440 Day
  Sex: Female

DRUGS (3)
  1. NEXIUM [Suspect]
     Indication: GASTROOESOPHAGEAL REFLUX DISEASE
     Route: 048
     Dates: start: 20100204, end: 20100205
  2. FROMILID [Suspect]
     Indication: BRONCHOPNEUMONIA
     Route: 048
     Dates: start: 20100204, end: 20100205
  3. NORVASC [Concomitant]
     Dosage: DAILY.
     Route: 048

REACTIONS (2)
  - ABDOMINAL PAIN [None]
  - HAEMATOCHEZIA [None]
